FAERS Safety Report 23134040 (Version 1)
Quarter: 2023Q4

REPORT INFORMATION
  Report Type: Spontaneous
  Country: US (occurrence: US)
  Receive Date: 20231101
  Receipt Date: 20231101
  Transmission Date: 20240110
  Serious: Yes (Other)
  Sender: FDA-Public Use
  Company Number: US-INTRA-CELLULAR THERAPIES, INC.-2023ICT01498

PATIENT
  Sex: Female

DRUGS (2)
  1. CAPLYTA [Suspect]
     Active Substance: LUMATEPERONE
     Dosage: 42 MG AT NIGHT
  2. UNSPECIFIED INGREDIENT [Concomitant]
     Active Substance: UNSPECIFIED INGREDIENT

REACTIONS (11)
  - Visual impairment [Recovered/Resolved]
  - Gait inability [Recovered/Resolved]
  - Confusional state [Recovered/Resolved]
  - Mydriasis [Recovered/Resolved]
  - Speech disorder [Recovered/Resolved]
  - Hypokinesia [Recovered/Resolved]
  - Pain [Recovered/Resolved]
  - Hypersomnia [Recovered/Resolved]
  - Hypotension [Recovered/Resolved]
  - Chills [Recovered/Resolved]
  - Headache [Recovered/Resolved]
